FAERS Safety Report 5879450-2 (Version None)
Quarter: 2008Q3

REPORT INFORMATION
  Report Type: 
  Country: None (occurrence: None)
  Receive Date: 20080912
  Receipt Date: 20080911
  Transmission Date: 20090109
  Serious: Yes (Other)
  Sender: FDA-Public Use
  Company Number: D0058701A

PATIENT
  Age: 80 Year
  Sex: Female

DRUGS (1)
  1. ELONTRIL [Suspect]
     Route: 048

REACTIONS (2)
  - DEMENTIA [None]
  - MYOCLONUS [None]
